FAERS Safety Report 19030694 (Version 1)
Quarter: 2021Q1

REPORT INFORMATION
  Report Type: Spontaneous
  Country: US (occurrence: US)
  Receive Date: 20210319
  Receipt Date: 20210319
  Transmission Date: 20210420
  Serious: Yes (Disabling)
  Sender: FDA-Public Use
  Company Number: None

PATIENT
  Age: 32 Year
  Sex: Female
  Weight: 72.58 kg

DRUGS (4)
  1. NEXPLANON [Suspect]
     Active Substance: ETONOGESTREL
     Dates: start: 20200301
  2. PROBIOTICS [Concomitant]
     Active Substance: PROBIOTICS NOS
  3. PRENATALS VITAMINS [Concomitant]
  4. LECITHIN [Concomitant]
     Active Substance: LECITHIN

REACTIONS (9)
  - Blindness [None]
  - Depressed mood [None]
  - Complication associated with device [None]
  - Headache [None]
  - Nervousness [None]
  - Abdominal pain [None]
  - Dizziness [None]
  - Tremor [None]
  - Chest pain [None]

NARRATIVE: CASE EVENT DATE: 20210318
